FAERS Safety Report 24434594 (Version 1)
Quarter: 2024Q4

REPORT INFORMATION
  Report Type: Spontaneous
  Country: US (occurrence: US)
  Receive Date: 20241014
  Receipt Date: 20241014
  Transmission Date: 20250114
  Serious: Yes (Hospitalization, Other)
  Sender: BRISTOL-MYERS SQUIBB COMPANY
  Company Number: US-BRISTOL-MYERS SQUIBB COMPANY-2024-159340

PATIENT
  Age: 71 Year
  Sex: Male
  Weight: 107.95 kg

DRUGS (1)
  1. REVLIMID [Suspect]
     Active Substance: LENALIDOMIDE
     Indication: Plasma cell myeloma
     Dosage: 1 CAPSULE EVERY DAY FOR 21 DAYS THEN 7 DAYS OFF
     Route: 048
     Dates: start: 202404, end: 202406

REACTIONS (3)
  - Constipation [Unknown]
  - Intestinal obstruction [Unknown]
  - Renal disorder [Unknown]

NARRATIVE: CASE EVENT DATE: 20240601
